FAERS Safety Report 8090227-2 (Version None)
Quarter: 2012Q1

REPORT INFORMATION
  Report Type: 
  Country: None (occurrence: None)
  Receive Date: 20120129
  Receipt Date: 20111110
  Transmission Date: 20120608
  Serious: No
  Sender: FDA-Public Use
  Company Number: US-ABBOTT-11P-163-0872283-00

PATIENT
  Sex: Female
  Weight: 140.74 kg

DRUGS (2)
  1. UNKNOWN OINTMENT [Concomitant]
     Indication: PSORIASIS
  2. HUMIRA [Suspect]
     Indication: PSORIASIS
     Route: 058
     Dates: start: 20110201, end: 20111101

REACTIONS (4)
  - ARTHRALGIA [None]
  - PSORIASIS [None]
  - DRUG INEFFECTIVE [None]
  - PSORIATIC ARTHROPATHY [None]
